FAERS Safety Report 10425239 (Version 1)
Quarter: 2014Q3

REPORT INFORMATION
  Report Type: Spontaneous
  Country: US (occurrence: US)
  Receive Date: 20140902
  Receipt Date: 20140902
  Transmission Date: 20150326
  Serious: Yes (Hospitalization, Other)
  Sender: FDA-Public Use
  Company Number: US-TAKEDA-2014TUS008004

PATIENT
  Age: 55 Year
  Sex: Male

DRUGS (2)
  1. ENTYVIO [Suspect]
     Active Substance: VEDOLIZUMAB
     Indication: COLITIS ULCERATIVE
     Dosage: 300 MG, WEEK ZERO
     Route: 042
     Dates: start: 2014, end: 2014
  2. ENTYVIO [Suspect]
     Active Substance: VEDOLIZUMAB
     Dosage: 300 MG,WEEK TWO
     Route: 042
     Dates: start: 201408, end: 201408

REACTIONS (1)
  - Superior sagittal sinus thrombosis [Unknown]

NARRATIVE: CASE EVENT DATE: 2014
